FAERS Safety Report 19620907 (Version 1)
Quarter: 2021Q3

REPORT INFORMATION
  Report Type: Spontaneous
  Country: US (occurrence: US)
  Receive Date: 20210728
  Receipt Date: 20210728
  Transmission Date: 20211014
  Serious: Yes (Other)
  Sender: FDA-Public Use
  Company Number: US-SA-2021SA248516

PATIENT
  Age: 82 Year
  Sex: Male

DRUGS (1)
  1. ZANTAC [Suspect]
     Active Substance: RANITIDINE HYDROCHLORIDE
     Indication: DYSPEPSIA
     Dosage: UNK
     Dates: start: 2009, end: 2015

REACTIONS (6)
  - Renal cancer [Unknown]
  - Hepatic cancer [Unknown]
  - Lung neoplasm malignant [Unknown]
  - Colorectal cancer [Unknown]
  - Gastric cancer [Unknown]
  - Bladder cancer [Unknown]
